FAERS Safety Report 17747442 (Version 1)
Quarter: 2020Q2

REPORT INFORMATION
  Report Type: Spontaneous
  Country: US (occurrence: US)
  Receive Date: 20200505
  Receipt Date: 20200505
  Transmission Date: 20200714
  Serious: No
  Sender: FDA-Public Use
  Company Number: NVSC2020US119415

PATIENT
  Sex: Female

DRUGS (1)
  1. GILENYA [Suspect]
     Active Substance: FINGOLIMOD HYDROCHLORIDE
     Indication: MULTIPLE SCLEROSIS
     Dosage: 1 DF, UNKNOWN
     Route: 048
     Dates: start: 2014

REACTIONS (4)
  - Somnolence [Unknown]
  - Disturbance in attention [Unknown]
  - Fatigue [Unknown]
  - Anxiety [Unknown]
